FAERS Safety Report 17507933 (Version 1)
Quarter: 2020Q1

REPORT INFORMATION
  Report Type: Report from Study
  Country: JP (occurrence: JP)
  Receive Date: 20200306
  Receipt Date: 20200306
  Transmission Date: 20200409
  Serious: Yes (Death, Other)
  Sender: FDA-Public Use
  Company Number: PHJP2015JP016364

PATIENT
  Age: 64 Year
  Sex: Female

DRUGS (28)
  1. FARYDAK [Suspect]
     Active Substance: PANOBINOSTAT
     Dosage: 10 MG, QD (15 MG X 3 ADMINISTRATIONS, 10 MG X 3 ADMINISTRATIONS/CYCLE)
     Route: 048
     Dates: end: 20151115
  2. LENADEX [Concomitant]
     Active Substance: DEXAMETHASONE ACETATE
     Dosage: UNK UKN, UNK
     Route: 048
     Dates: start: 20151116, end: 20151206
  3. FARYDAK [Suspect]
     Active Substance: PANOBINOSTAT
     Dosage: 15 MG, QD
     Route: 048
     Dates: start: 20151116
  4. FARYDAK [Suspect]
     Active Substance: PANOBINOSTAT
     Dosage: 15 MG, QD (15 MG X 3 ADMINISTRATIONS, 10 MG X 3 ADMINISTRATIONS)
     Route: 048
     Dates: end: 20151225
  5. FARYDAK [Suspect]
     Active Substance: PANOBINOSTAT
     Dosage: 10 MG, QD (10 MG X 3 ADMINISTRATIONS/CYCLE)
     Route: 048
     Dates: start: 20160106, end: 20160117
  6. VELCADE [Suspect]
     Active Substance: BORTEZOMIB
     Dosage: 1.0 MG/M2, QW2
     Route: 058
     Dates: start: 20151207, end: 20151225
  7. LENADEX [Concomitant]
     Active Substance: DEXAMETHASONE ACETATE
     Dosage: UNK UKN, UNK
     Route: 048
     Dates: start: 20160118, end: 20160127
  8. FARYDAK [Suspect]
     Active Substance: PANOBINOSTAT
     Dosage: 10 MG, QD (15 MG X 3 ADMINISTRATIONS, 10 MG X 3 ADMINISTRATIONS)
     Route: 048
     Dates: end: 20151225
  9. VELCADE [Suspect]
     Active Substance: BORTEZOMIB
     Dosage: 1.0 MG/M2, QW2
     Route: 058
     Dates: start: 20160118, end: 20160127
  10. FARYDAK [Suspect]
     Active Substance: PANOBINOSTAT
     Dosage: 15 MG, QD (15 MG X 3 ADMINISTRATIONS, 10 MG X 3 ADMINISTRATIONS/CYCLE)
     Route: 048
     Dates: end: 20151206
  11. FARYDAK [Suspect]
     Active Substance: PANOBINOSTAT
     Dosage: 15 MG, QD
     Route: 048
     Dates: start: 20151207
  12. FARYDAK [Suspect]
     Active Substance: PANOBINOSTAT
     Dosage: 10 MG, QD (10 MG X 5 ADMINISTRATIONS/CYCLE)
     Route: 048
     Dates: start: 20160118, end: 20160127
  13. VELCADE [Suspect]
     Active Substance: BORTEZOMIB
     Indication: PLASMA CELL MYELOMA
     Dosage: 1.3 MG/M2, QW2
     Route: 058
     Dates: start: 20150911, end: 20150929
  14. LENADEX [Concomitant]
     Active Substance: DEXAMETHASONE ACETATE
     Dosage: UNK UKN, UNK
     Route: 048
     Dates: start: 20151005, end: 20151025
  15. LENADEX [Concomitant]
     Active Substance: DEXAMETHASONE ACETATE
     Dosage: UNK UKN, UNK
     Route: 048
     Dates: start: 20160106, end: 20160117
  16. FARYDAK [Suspect]
     Active Substance: PANOBINOSTAT
     Indication: PLASMA CELL MYELOMA
     Dosage: 20 MG, QD
     Route: 048
     Dates: start: 20150911, end: 20150917
  17. FARYDAK [Suspect]
     Active Substance: PANOBINOSTAT
     Dosage: 10 MG, QD (20 MG X 3 ADMINISTRATIONS, 10 MG X 3 ADMINISTRATIONS/CYCLE)
     Route: 048
     Dates: start: 20150918, end: 20150929
  18. VELCADE [Suspect]
     Active Substance: BORTEZOMIB
     Dosage: 1.0 MG/M2, QW2
     Route: 058
     Dates: start: 20151116, end: 20151206
  19. LENADEX [Concomitant]
     Active Substance: DEXAMETHASONE ACETATE
     Indication: PLASMA CELL MYELOMA
     Dosage: 20 MG, UNK
     Route: 048
     Dates: start: 20150911, end: 20150929
  20. FARYDAK [Suspect]
     Active Substance: PANOBINOSTAT
     Dosage: 15 MG, QD
     Route: 048
     Dates: start: 20151026
  21. FARYDAK [Suspect]
     Active Substance: PANOBINOSTAT
     Dosage: 10 MG, QD (15 MG X 3 ADMINISTRATIONS, 10 MG X 3 ADMINISTRATIONS/CYCLE)
     Route: 048
     Dates: end: 20151206
  22. LENADEX [Concomitant]
     Active Substance: DEXAMETHASONE ACETATE
     Dosage: UNK UKN, UNK
     Route: 048
     Dates: start: 20151026, end: 20151115
  23. VELCADE [Suspect]
     Active Substance: BORTEZOMIB
     Dosage: 1.0 MG/M2, QW2
     Route: 058
     Dates: start: 20151005, end: 20151025
  24. VELCADE [Suspect]
     Active Substance: BORTEZOMIB
     Dosage: 1.0 MG/M2, QW2
     Route: 058
     Dates: start: 20151026, end: 20151115
  25. FARYDAK [Suspect]
     Active Substance: PANOBINOSTAT
     Dosage: 10 MG, QD (10 MG X 6 ADMINISTRATIONS/CYCLE)
     Route: 048
     Dates: start: 20151005, end: 20151025
  26. FARYDAK [Suspect]
     Active Substance: PANOBINOSTAT
     Dosage: 15 MG, QD (15 MG X 3 ADMINISTRATIONS, 10 MG X 3 ADMINISTRATIONS/CYCLE)
     Route: 048
     Dates: end: 20151115
  27. VELCADE [Suspect]
     Active Substance: BORTEZOMIB
     Dosage: 1.0 MG/M2, QW2
     Route: 058
     Dates: start: 20160106, end: 20160117
  28. LENADEX [Concomitant]
     Active Substance: DEXAMETHASONE ACETATE
     Dosage: UNK UKN, UNK
     Route: 048
     Dates: start: 20151207, end: 20151225

REACTIONS (7)
  - Malignant neoplasm progression [Fatal]
  - Hallucination, visual [Recovered/Resolved]
  - Diarrhoea [Recovered/Resolved]
  - Hypoaesthesia [Not Recovered/Not Resolved]
  - Plasma cell myeloma [Fatal]
  - Thrombocytopenia [Recovering/Resolving]
  - Anaemia [Unknown]

NARRATIVE: CASE EVENT DATE: 20150913
